FAERS Safety Report 24052248 (Version 1)
Quarter: 2024Q3

REPORT INFORMATION
  Report Type: Spontaneous
  Country: US (occurrence: US)
  Receive Date: 20240704
  Receipt Date: 20240704
  Transmission Date: 20241017
  Serious: No
  Sender: CSL BEHRING
  Company Number: US-BEH-2024172424

PATIENT
  Age: 11 Year
  Sex: Male

DRUGS (2)
  1. HIZENTRA [Suspect]
     Active Substance: HUMAN IMMUNOGLOBULIN G
     Indication: Hypogammaglobulinaemia
     Dosage: 4 MG, QW
     Route: 058
     Dates: start: 202401
  2. DUPIXENT [Concomitant]
     Active Substance: DUPILUMAB
     Indication: Asthma
     Dosage: 300 MG QW4
     Route: 058
     Dates: start: 20230922

REACTIONS (9)
  - Injection site erythema [Unknown]
  - Injection site bruising [Unknown]
  - Injection site pruritus [Unknown]
  - Injection site discharge [Unknown]
  - Illness [Unknown]
  - Decreased appetite [Unknown]
  - Pain [Unknown]
  - Pruritus [Unknown]
  - Ear infection [Not Recovered/Not Resolved]
